FAERS Safety Report 5373496-9 (Version None)
Quarter: 2007Q2

REPORT INFORMATION
  Report Type: 
  Country: None (occurrence: None)
  Receive Date: 20070626
  Receipt Date: 20070626
  Transmission Date: 20071010
  Serious: Yes (Death, Hospitalization)
  Sender: FDA-Public Use
  Company Number: None

PATIENT
  Sex: Female
  Weight: 84.5 kg

DRUGS (16)
  1. CISPLATIN [Suspect]
     Indication: NON-SMALL CELL LUNG CANCER
     Dosage: 93MG IV D1,8 IV
     Route: 042
     Dates: start: 20070515, end: 20070618
  2. CISPLATIN [Suspect]
     Indication: NON-SMALL CELL LUNG CANCER
     Dosage: 93MG IV D1,8 IV
     Route: 042
     Dates: start: 20070618
  3. SORAFENIB [Suspect]
     Indication: NON-SMALL CELL LUNG CANCER
     Dosage: 200MG QD PO
     Route: 048
     Dates: start: 20070515, end: 20070621
  4. ETOPOSIDE [Suspect]
     Indication: NON-SMALL CELL LUNG CANCER
     Dosage: 93MG IV D1-5 IV
     Route: 042
     Dates: start: 20070515, end: 20070618
  5. ETOPOSIDE [Suspect]
     Indication: NON-SMALL CELL LUNG CANCER
     Dosage: 93MG IV D1-5 IV
     Route: 042
     Dates: start: 20070615
  6. PRILOSEC OTC [Concomitant]
  7. TESSALON [Concomitant]
  8. CELEBREX [Concomitant]
  9. SYNTHROID [Concomitant]
  10. METFORMIN [Concomitant]
  11. QUINARETIC [Concomitant]
  12. ACTONEL [Concomitant]
  13. PHENTERMINE HYDROCHLORIDE [Concomitant]
  14. IMODIUM A-D [Concomitant]
  15. LEVAQUIN [Concomitant]
  16. PROCHLOPERALINE [Concomitant]

REACTIONS (5)
  - CARDIO-RESPIRATORY ARREST [None]
  - CHEST PAIN [None]
  - FALL [None]
  - PULMONARY HAEMORRHAGE [None]
  - SEPSIS [None]
